FAERS Safety Report 8229842-1 (Version None)
Quarter: 2012Q1

REPORT INFORMATION
  Report Type: 
  Country: None (occurrence: None)
  Receive Date: 20120323
  Receipt Date: 20120314
  Transmission Date: 20120608
  Serious: Yes (Life-Threatening, Hospitalization)
  Sender: FDA-Public Use
  Company Number: FR-BRISTOL-MYERS SQUIBB COMPANY-15440340

PATIENT
  Age: 37 Year
  Sex: Male

DRUGS (1)
  1. HYDREA [Suspect]
     Indication: POLYCYTHAEMIA
     Dosage: TAKEN FOR SEVERAL YEARS

REACTIONS (1)
  - PHLEBITIS [None]
